FAERS Safety Report 9019872 (Version 1)
Quarter: 2013Q1

REPORT INFORMATION
  Report Type: Report from Study
  Country: JP (occurrence: JP)
  Receive Date: 20130118
  Receipt Date: 20130118
  Transmission Date: 20140127
  Serious: Yes (Other)
  Sender: FDA-Public Use
  Company Number: JP-009507513-1207JPN000070

PATIENT
  Age: 62 Year
  Sex: Male
  Weight: 62 kg

DRUGS (14)
  1. PEGINTRON [Suspect]
     Indication: CHRONIC HEPATITIS C
     Dosage: 1.62 MICROGRAM PER KILOGRAM, QW
     Route: 058
     Dates: start: 20120316, end: 20120330
  2. PEGINTRON [Suspect]
     Dosage: 1.38 MICROGRAM PER KILOGRAM, QW
     Route: 058
     Dates: start: 20120406
  3. REBETOL [Suspect]
     Indication: CHRONIC HEPATITIS C
     Dosage: 800 MG, QD
     Route: 048
     Dates: start: 20120316, end: 20120405
  4. REBETOL [Suspect]
     Dosage: 600 MG, QD
     Route: 048
     Dates: start: 20120406, end: 20120510
  5. REBETOL [Suspect]
     Dosage: 400 MG, QD
     Route: 048
     Dates: start: 20120511
  6. TELAVIC [Suspect]
     Indication: CHRONIC HEPATITIS C
     Dosage: 2250 MG, QD
     Route: 048
     Dates: start: 20120316, end: 20120501
  7. TELAVIC [Suspect]
     Dosage: 1500 MG, QD
     Route: 048
     Dates: start: 20120502, end: 20120513
  8. TELAVIC [Suspect]
     Dosage: 500 MG, ONCE
     Route: 048
     Dates: start: 20120514, end: 20120514
  9. MERISLON [Concomitant]
     Route: 048
  10. ZYLORIC [Concomitant]
     Indication: HYPERURICAEMIA
     Dosage: 200 MG, QD
     Route: 048
     Dates: start: 20120309, end: 20120318
  11. ZYLORIC [Concomitant]
     Dosage: 100 MG, QD
     Route: 048
     Dates: start: 20120601
  12. LOXONIN [Concomitant]
     Indication: PROPHYLAXIS
     Dosage: 60 MG, PRN
     Route: 048
     Dates: start: 20120315, end: 20120331
  13. MUCOSTA [Concomitant]
     Indication: PROPHYLAXIS
     Dosage: 100 MG, PRN
     Route: 048
     Dates: start: 20120315, end: 20120331
  14. MUCOSTA [Concomitant]
     Dosage: 300 MG, ONCE
     Route: 048
     Dates: start: 20120518

REACTIONS (1)
  - Rash [Recovering/Resolving]
